FAERS Safety Report 12157701 (Version 1)
Quarter: 2016Q1

REPORT INFORMATION
  Report Type: Spontaneous
  Country: US (occurrence: US)
  Receive Date: 20160308
  Receipt Date: 20160308
  Transmission Date: 20160526
  Serious: Yes (Other)
  Sender: FDA-Public Use
  Company Number: US-BAYER-2016-040376

PATIENT
  Age: 4 Year
  Sex: Male
  Weight: 20.4 kg

DRUGS (1)
  1. MIRALAX [Suspect]
     Active Substance: POLYETHYLENE GLYCOL 3350
     Indication: CONSTIPATION
     Dosage: 1/3 CAP, DAILY, IN 8 OUNCES OF A BEVERAGE
     Route: 048
     Dates: start: 2012

REACTIONS (4)
  - Product use issue [None]
  - Congenital megacolon [Not Recovered/Not Resolved]
  - Off label use [Not Recovered/Not Resolved]
  - Wrong technique in product usage process [None]

NARRATIVE: CASE EVENT DATE: 2012
